FAERS Safety Report 4450908-6 (Version None)
Quarter: 2004Q3

REPORT INFORMATION
  Report Type: 
  Country: None (occurrence: None)
  Receive Date: 20040916
  Receipt Date: 20020102
  Transmission Date: 20050211
  Serious: Yes (Other)
  Sender: FDA-Public Use
  Company Number: US-BRISTOL-MYERS SQUIBB COMPANY-11759891

PATIENT
  Sex: Female

DRUGS (10)
  1. STADOL [Suspect]
     Route: 045
  2. STADOL [Suspect]
     Dosage: IV AND IM
     Route: 042
  3. NEURONTIN [Concomitant]
  4. HYDROCODONE [Concomitant]
  5. CLONAZEPAM [Concomitant]
  6. ALPRAZOLAM [Concomitant]
  7. ULTRAM [Concomitant]
  8. ZYPREXA [Concomitant]
  9. PHENERGAN HCL [Concomitant]
  10. VALIUM [Concomitant]

REACTIONS (2)
  - DEPENDENCE [None]
  - DRUG WITHDRAWAL SYNDROME [None]
